FAERS Safety Report 5888942-1 (Version None)
Quarter: 2008Q3

REPORT INFORMATION
  Report Type: 
  Country: None (occurrence: None)
  Receive Date: 20080919
  Receipt Date: 20080909
  Transmission Date: 20090109
  Serious: Yes (Hospitalization)
  Sender: FDA-Public Use
  Company Number: SE-JNJFOC-20080902441

PATIENT
  Age: 52 Year
  Sex: Female

DRUGS (2)
  1. REMICADE [Suspect]
     Dosage: TOTAL OF FOUR INFUSIONS ADMINISTERED
     Route: 042
  2. REMICADE [Suspect]
     Indication: CROHN'S DISEASE
     Route: 042

REACTIONS (1)
  - PUSTULAR PSORIASIS [None]
